FAERS Safety Report 8027805-2 (Version None)
Quarter: 2012Q1

REPORT INFORMATION
  Report Type: 
  Country: None (occurrence: None)
  Receive Date: 20120104
  Receipt Date: 20111226
  Transmission Date: 20120608
  Serious: Yes (Other)
  Sender: FDA-Public Use
  Company Number: OMPQ-NO-1112S-2068

PATIENT
  Age: 14 Month
  Sex: Female

DRUGS (1)
  1. OMNIPAQUE 70 [Suspect]
     Indication: PRODUCT USED FOR UNKNOWN INDICATION
     Dosage: 18 ML, SINGLE DOSE, INTRAVENOUS
     Route: 042
     Dates: start: 20111210, end: 20111210

REACTIONS (1)
  - INFUSION SITE EXTRAVASATION [None]
